FAERS Safety Report 19169650 (Version 3)
Quarter: 2021Q2

REPORT INFORMATION
  Report Type: Spontaneous
  Country: DE (occurrence: DE)
  Receive Date: 20210422
  Receipt Date: 20210426
  Transmission Date: 20210717
  Serious: Yes (Death, Other)
  Sender: FDA-Public Use
  Company Number: NVSC2021DE089603

PATIENT
  Age: 35 Year
  Sex: Female
  Weight: 80 kg

DRUGS (9)
  1. METO?SUCCINAT SANDOZ [Interacting]
     Active Substance: METOPROLOL SUCCINATE
     Indication: HYPERTENSIVE CRISIS
     Dosage: 23.5 MG, QD (1?0?0?0)
     Route: 048
     Dates: start: 20140913
  2. QUETIAPINE. [Suspect]
     Active Substance: QUETIAPINE
     Indication: ACUTE PSYCHOSIS
     Dosage: 300 MG, QD (0?0?0?1)
     Route: 048
  3. SOLIAN [Interacting]
     Active Substance: AMISULPRIDE
     Indication: ANXIETY
     Dosage: 100 MG, Q12H (100 MG 1?0?1)
     Route: 048
     Dates: start: 20200731
  4. PROMETHAZINE [Interacting]
     Active Substance: PROMETHAZINE HYDROCHLORIDE
     Indication: ACUTE PSYCHOSIS
     Dosage: 25 MG (1 ST MAX 44X/24 H 4 H)
     Route: 048
     Dates: start: 20200731
  5. METO?SUCCINAT SANDOZ [Interacting]
     Active Substance: METOPROLOL SUCCINATE
     Indication: ESSENTIAL HYPERTENSION
  6. BIPRETERAX N [Interacting]
     Active Substance: INDAPAMIDE\PERINDOPRIL ARGININE
     Indication: ESSENTIAL HYPERTENSION
  7. SOLIAN [Interacting]
     Active Substance: AMISULPRIDE
     Indication: RESTLESSNESS
  8. BIPRETERAX N [Interacting]
     Active Substance: INDAPAMIDE\PERINDOPRIL ARGININE
     Indication: HYPERTENSIVE CRISIS
     Dosage: 1 DF, QD (5 MG / 1,25 MG 1?0?0?0)
     Route: 048
     Dates: start: 20140913
  9. SOLIAN [Interacting]
     Active Substance: AMISULPRIDE
     Indication: SLEEP DISORDER

REACTIONS (3)
  - Death [Fatal]
  - Multiple organ dysfunction syndrome [Fatal]
  - Drug interaction [Unknown]

NARRATIVE: CASE EVENT DATE: 20200804
